FAERS Safety Report 20663805 (Version 2)
Quarter: 2022Q3

REPORT INFORMATION
  Report Type: Spontaneous
  Country: CA (occurrence: CA)
  Receive Date: 20220401
  Receipt Date: 20220712
  Transmission Date: 20221027
  Serious: Yes (Other)
  Sender: FDA-Public Use
  Company Number: CA-GLAXOSMITHKLINE-CA2022GSK058173

PATIENT

DRUGS (1)
  1. ZANTAC [Suspect]
     Active Substance: RANITIDINE HYDROCHLORIDE
     Indication: Gastric disorder
     Dosage: UNK
     Route: 065

REACTIONS (20)
  - Adenocarcinoma [Unknown]
  - Bladder neoplasm [Unknown]
  - Colorectal adenocarcinoma [Unknown]
  - Transitional cell carcinoma [Unknown]
  - Bladder cancer stage 0, with cancer in situ [Unknown]
  - Colorectal cancer [Unknown]
  - Colon cancer [Unknown]
  - Bladder cancer [Unknown]
  - Diverticulum intestinal [Unknown]
  - Colon neoplasm [Unknown]
  - Adenoma benign [Unknown]
  - Intestinal mass [Unknown]
  - Large intestine polyp [Unknown]
  - Calculus bladder [Unknown]
  - Haematuria [Unknown]
  - Benign neoplasm of bladder [Unknown]
  - Neoplasm [Unknown]
  - Urinary bladder polyp [Unknown]
  - Papilloma [Unknown]
  - Polypoid cystitis [Unknown]
